FAERS Safety Report 8860553 (Version 1)
Quarter: 2012Q4

REPORT INFORMATION
  Report Type: 
  Country: CA (occurrence: CA)
  Receive Date: 20121025
  Receipt Date: 20121025
  Transmission Date: 20130627
  Serious: Yes (Other)
  Sender: FDA-Public Use
  Company Number: CA-AMGEN-CANSP2012063601

PATIENT
  Age: 53 Year
  Sex: Female

DRUGS (11)
  1. PROLIA [Suspect]
     Indication: OSTEOPOROSIS
     Dosage: UNK UNK, one time dose
     Dates: start: 20111206
  2. PREDNISONE [Concomitant]
     Dosage: UNK
     Route: 048
  3. CELLCEPT                           /01275102/ [Concomitant]
     Dosage: 1500 mg, bid
  4. PANTOLOC                           /01263204/ [Concomitant]
     Dosage: 400 mg, bid
     Route: 048
  5. ACYCLOVIR                          /00587301/ [Concomitant]
     Dosage: 700 mg, bid
     Route: 048
  6. TOPROL [Concomitant]
  7. MIACALCIN [Concomitant]
     Dosage: UNK
  8. CALCIUM CARBONATE [Concomitant]
     Dosage: UNK
  9. VITAMIN D /00107901/ [Concomitant]
     Dosage: UNK
  10. FLUCONAZOLE [Concomitant]
     Dosage: UNK
  11. PENTAMIDINE [Concomitant]
     Dosage: UNK

REACTIONS (3)
  - Metastases to spine [Not Recovered/Not Resolved]
  - Breast cancer metastatic [Unknown]
  - Spinal fracture [Unknown]
